FAERS Safety Report 20739190 (Version 3)
Quarter: 2022Q2

REPORT INFORMATION
  Report Type: Spontaneous
  Country: RU (occurrence: RU)
  Receive Date: 20220422
  Receipt Date: 20220530
  Transmission Date: 20220721
  Serious: Yes (Other)
  Sender: FDA-Public Use
  Company Number: RU-JNJFOC-20220435314

PATIENT
  Age: 41 Year
  Sex: Female

DRUGS (1)
  1. YONDELIS [Suspect]
     Active Substance: TRABECTEDIN
     Indication: Uterine leiomyosarcoma
     Route: 065

REACTIONS (4)
  - Haematotoxicity [Unknown]
  - Asthenia [Unknown]
  - Asthenia [Unknown]
  - Transaminases increased [Unknown]
